FAERS Safety Report 4703648-X (Version None)
Quarter: 2005Q2

REPORT INFORMATION
  Report Type: 
  Country: None (occurrence: None)
  Receive Date: 20050208
  Receipt Date: 20050208
  Transmission Date: 20051028
  Serious: Yes (Other)
  Sender: FDA-Public Use
  Company Number: None

PATIENT
  Sex: Female

DRUGS (2)
  1. METFORMIN HCL [Suspect]
     Dosage: 500 MG BID
  2. GLUCOTROL XL GENERIC FORM 2.5MG [Suspect]
     Dosage: 2.5 MG QD

REACTIONS (3)
  - DRUG INTOLERANCE [None]
  - FLUSHING [None]
  - NAUSEA [None]
